FAERS Safety Report 13831255 (Version 1)
Quarter: 2017Q3

REPORT INFORMATION
  Report Type: Spontaneous
  Country: US (occurrence: US)
  Receive Date: 20170803
  Receipt Date: 20170803
  Transmission Date: 20171127
  Serious: Yes (Hospitalization)
  Sender: FDA-Public Use
  Company Number: US-B.I. PHARMACEUTICALS,INC./RIDGEFIELD-2017-BI-043230

PATIENT
  Age: 76 Year
  Sex: Male

DRUGS (3)
  1. OFEV [Suspect]
     Active Substance: NINTEDANIB
     Indication: IDIOPATHIC PULMONARY FIBROSIS
     Dosage: ONE CAPSULE BID;  FORM STRENGTH: 150 MG; FORMULATION: CAPSULE? ADMINISTRATION CORRECT? YES ?ACTION(S
     Route: 048
     Dates: start: 201701
  2. ALLOPURINOL. [Concomitant]
     Active Substance: ALLOPURINOL
     Indication: GOUT
     Dosage: ONE CAPLET DAILY;  FORM STRENGTH: 300MG; FORMULATION: CAPLET
     Route: 048
  3. METOPROLOL. [Concomitant]
     Active Substance: METOPROLOL
     Indication: HYPERTENSION
     Dosage: ONE CAPLET DAILY;  FORM STRENGTH: 50MG; FORMULATION: CAPLET
     Route: 048

REACTIONS (2)
  - Dyspnoea [Unknown]
  - Pneumonia [Unknown]

NARRATIVE: CASE EVENT DATE: 20170731
